FAERS Safety Report 8828807 (Version 2)
Quarter: 2012Q4

REPORT INFORMATION
  Report Type: 
  Country: FI (occurrence: FI)
  Receive Date: 20121008
  Receipt Date: 20121019
  Transmission Date: 20130627
  Serious: Yes (Hospitalization, Other)
  Sender: FDA-Public Use
  Company Number: FI-ROCHE-796040

PATIENT

DRUGS (8)
  1. RITUXIMAB [Suspect]
     Indication: MANTLE CELL LYMPHOMA
     Dosage: 8 DOSES
     Route: 042
  2. RITUXIMAB [Suspect]
     Dosage: MAINTENANCE FOR 2 YEARS
     Route: 065
  3. CYTARABINE [Suspect]
     Indication: MANTLE CELL LYMPHOMA
     Dosage: 10 CYCLES
     Route: 042
  4. FLUDARABINE [Suspect]
     Indication: MANTLE CELL LYMPHOMA
     Dosage: 10 CYCLES
     Route: 042
  5. CYCLOPHOSPHAMIDE [Suspect]
     Indication: MANTLE CELL LYMPHOMA
     Dosage: 10 CYCLES
     Route: 042
  6. DOXORUBICIN [Suspect]
     Indication: MANTLE CELL LYMPHOMA
     Dosage: 10 CYCLES
     Route: 042
  7. PREDNISONE [Suspect]
     Indication: MANTLE CELL LYMPHOMA
     Dosage: 10 CYCLES
     Route: 048
  8. VINCRISTINE [Suspect]
     Indication: MANTLE CELL LYMPHOMA
     Dosage: 10 CYCLES
     Route: 042

REACTIONS (7)
  - Febrile neutropenia [Unknown]
  - Neutropenia [Unknown]
  - Infection [Unknown]
  - Endocarditis [Unknown]
  - Hepatic enzyme increased [Unknown]
  - Gastrointestinal toxicity [Unknown]
  - Herpes virus infection [Unknown]
